FAERS Safety Report 5222820-6 (Version None)
Quarter: 2007Q1

REPORT INFORMATION
  Report Type: 
  Country: None (occurrence: None)
  Receive Date: 20070129
  Receipt Date: 20070119
  Transmission Date: 20070707
  Serious: Yes (Life-Threatening, Hospitalization)
  Sender: FDA-Public Use
  Company Number: FR-GLAXOSMITHKLINE-B0448571A

PATIENT
  Age: 68 Year
  Sex: Male

DRUGS (6)
  1. AUGMENTIN '125' [Suspect]
     Dosage: 3G PER DAY
     Route: 042
     Dates: start: 20061106, end: 20061109
  2. TRIFLUCAN [Suspect]
     Route: 042
     Dates: start: 20061106, end: 20061109
  3. ETHYOL [Suspect]
     Dosage: 340MG THREE TIMES PER WEEK
     Route: 042
     Dates: start: 20060928, end: 20061106
  4. CIPROFLOXACIN [Suspect]
     Dosage: 500MG TWICE PER DAY
     Route: 048
     Dates: start: 20061106, end: 20061109
  5. PERFALGAN [Suspect]
     Dosage: 1G PER DAY
     Dates: start: 20061106, end: 20061107
  6. PRIMPERAN [Suspect]
     Indication: NAUSEA
     Dosage: 60MG PER DAY
     Route: 042
     Dates: start: 20061106, end: 20061106

REACTIONS (1)
  - TOXIC EPIDERMAL NECROLYSIS [None]
